FAERS Safety Report 15429408 (Version 1)
Quarter: 2018Q3

REPORT INFORMATION
  Report Type: Spontaneous
  Country: US (occurrence: US)
  Receive Date: 20180926
  Receipt Date: 20180926
  Transmission Date: 20181010
  Serious: No
  Sender: FDA-Public Use
  Company Number: US-ASTRAZENECA-2018SF09860

PATIENT
  Sex: Female
  Weight: 54 kg

DRUGS (1)
  1. BYDUREON BCISE [Suspect]
     Active Substance: EXENATIDE
     Indication: BLOOD GLUCOSE ABNORMAL
     Route: 058
     Dates: start: 201806

REACTIONS (4)
  - Nausea [Unknown]
  - Feeling abnormal [Unknown]
  - Eructation [Unknown]
  - Decreased appetite [Unknown]
